FAERS Safety Report 8304674-4 (Version None)
Quarter: 2012Q2

REPORT INFORMATION
  Report Type: 
  Country: None (occurrence: None)
  Receive Date: 20120423
  Receipt Date: 20120414
  Transmission Date: 20120825
  Serious: Yes (Life-Threatening, Hospitalization, Other)
  Sender: FDA-Public Use
  Company Number: PHHY2012AT031862

PATIENT
  Sex: Female
  Weight: 90 kg

DRUGS (6)
  1. GILENYA [Suspect]
     Indication: MULTIPLE SCLEROSIS RELAPSE
     Dosage: UNK UKN, UNK
     Route: 048
     Dates: start: 20110811
  2. TRAZODONE HCL [Concomitant]
  3. TIZANIDINE HCL [Concomitant]
  4. GABAPENTIN [Concomitant]
  5. ESCITALOPRAM [Concomitant]
  6. DRONABINOL [Concomitant]

REACTIONS (1)
  - MYOCARDIAL INFARCTION [None]
